FAERS Safety Report 8575139 (Version 3)
Quarter: 2013Q3

REPORT INFORMATION
  Report Type: Spontaneous
  Country: FR (occurrence: FR)
  Receive Date: 20120523
  Receipt Date: 20130808
  Transmission Date: 20140515
  Serious: Yes (Hospitalization, Other)
  Sender: FDA-Public Use
  Company Number: PHHY2012FR041961

PATIENT
  Age: 56 Year
  Sex: Male

DRUGS (8)
  1. VOLTARENE LP [Suspect]
     Indication: SPINAL PAIN
     Dosage: 75 MG, BID
     Route: 048
     Dates: start: 20120207, end: 20120208
  2. PROFENID [Suspect]
     Dosage: 100 MG, BID
     Route: 030
     Dates: start: 20120208, end: 20120222
  3. CRESTOR [Concomitant]
     Dosage: 20 MG, QD
     Dates: start: 20120207
  4. MIOREL [Concomitant]
     Dosage: 2 DF, BID
     Dates: start: 20120207, end: 20120213
  5. LAMALINE [Concomitant]
     Dates: start: 20120207, end: 20120213
  6. FORLAX [Concomitant]
     Dates: start: 20120207
  7. INIPOMP [Concomitant]
     Dates: start: 20120207
  8. ACTISKENAN [Concomitant]
     Dates: start: 20120214

REACTIONS (22)
  - Bone abscess [Recovered/Resolved]
  - Staphylococcus test positive [Unknown]
  - Spondylitis [Recovered/Resolved]
  - Back pain [Unknown]
  - Intervertebral disc degeneration [Unknown]
  - Bone marrow oedema [Unknown]
  - Intervertebral disc protrusion [Unknown]
  - Leukocytosis [Unknown]
  - Extensor plantar response [Unknown]
  - Thrombocytosis [Unknown]
  - Pleurisy [Recovered/Resolved]
  - Bacteraemia [Recovered/Resolved]
  - Joint contracture [Unknown]
  - Inflammation [Unknown]
  - Diaphragmatic disorder [Unknown]
  - Pleural effusion [Unknown]
  - Chest pain [Recovered/Resolved]
  - Cholestasis [Unknown]
  - Weight decreased [Unknown]
  - Nodule [Unknown]
  - Normochromic normocytic anaemia [Unknown]
  - Breath sounds abnormal [Unknown]
